FAERS Safety Report 4388171-7 (Version None)
Quarter: 2004Q2

REPORT INFORMATION
  Report Type: 
  Country: None (occurrence: None)
  Receive Date: 20040625
  Receipt Date: 20040618
  Transmission Date: 20050107
  Serious: Yes (Hospitalization)
  Sender: FDA-Public Use
  Company Number: 2004-06-1308

PATIENT
  Age: 21 Year
  Sex: Male
  Weight: 129.7287 kg

DRUGS (4)
  1. PEG-INTRON [Suspect]
     Indication: HEPATITIS C
     Dosage: SUBCUTANEOUS
     Route: 058
  2. RIBAVIRIN [Suspect]
     Indication: HEPATITIS C
     Dosage: ORAL
     Route: 048
  3. VICODIN [Concomitant]
  4. LEXAPRO [Concomitant]

REACTIONS (1)
  - PULMONARY EMBOLISM [None]
